FAERS Safety Report 11969859 (Version 2)
Quarter: 2017Q2

REPORT INFORMATION
  Report Type: Spontaneous
  Country: JP (occurrence: JP)
  Receive Date: 20160128
  Receipt Date: 20170621
  Transmission Date: 20170829
  Serious: Yes (Hospitalization)
  Sender: FDA-Public Use
  Company Number: JP-GLAXOSMITHKLINE-JP2015JPN176409

PATIENT
  Age: 77 Year
  Sex: Male
  Weight: 64 kg

DRUGS (4)
  1. VALTREX [Suspect]
     Active Substance: VALACYCLOVIR HYDROCHLORIDE
     Indication: HERPES ZOSTER
     Dosage: 1000 MG, TID
     Route: 048
     Dates: start: 20151201, end: 20151207
  2. ZETIA [Concomitant]
     Active Substance: EZETIMIBE
     Dosage: 10 MG, QD
  3. HALCION [Concomitant]
     Active Substance: TRIAZOLAM
     Dosage: 0.125 MG, QD
  4. CEFZON [Concomitant]
     Active Substance: CEFDINIR
     Dosage: 1 DF, QD
     Dates: start: 20151130, end: 20151201

REACTIONS (3)
  - Drug eruption [Recovering/Resolving]
  - Erythema [Recovered/Resolved]
  - Rash [Recovering/Resolving]

NARRATIVE: CASE EVENT DATE: 20151208
